FAERS Safety Report 8550443-X (Version None)
Quarter: 2012Q3

REPORT INFORMATION
  Report Type: 
  Country: None (occurrence: None)
  Receive Date: 20120730
  Receipt Date: 20120725
  Transmission Date: 20120928
  Serious: Yes (Death)
  Sender: FDA-Public Use
  Company Number: IT-PFIZER INC-2012180944

PATIENT
  Age: 76 Year
  Sex: Male

DRUGS (4)
  1. DOXORUBICIN HCL [Suspect]
     Indication: B-CELL LYMPHOMA
     Dosage: 380 MG, CYCLIC
     Route: 042
     Dates: start: 20070313, end: 20070517
  2. VINCRISTINE SULFATE [Suspect]
     Indication: B-CELL LYMPHOMA
     Dosage: 8 MG, CYCLIC
     Route: 042
     Dates: start: 20070313, end: 20070517
  3. CYCLOPHOSPHAMIDE [Suspect]
     Indication: B-CELL LYMPHOMA
     Dosage: 5700 MG, CYCLIC
     Route: 042
     Dates: start: 20070313, end: 20070517
  4. ZEVALIN [Suspect]
     Indication: DIFFUSE LARGE B-CELL LYMPHOMA
     Dosage: 1.6 MG, TOTAL
     Route: 030
     Dates: start: 20070719, end: 20070719

REACTIONS (2)
  - NEOPLASM MALIGNANT [None]
  - MYELODYSPLASTIC SYNDROME [None]
